FAERS Safety Report 7780231-3 (Version None)
Quarter: 2011Q3

REPORT INFORMATION
  Report Type: 
  Country: None (occurrence: None)
  Receive Date: 20110927
  Receipt Date: 20110915
  Transmission Date: 20111222
  Serious: Yes (Death, Hospitalization)
  Sender: FDA-Public Use
  Company Number: JP-AMGEN-US295427

PATIENT
  Age: 56 Year
  Sex: Male
  Weight: 47.991 kg

DRUGS (10)
  1. ENBREL [Suspect]
     Dosage: 25 MG, QWK
     Route: 058
     Dates: start: 20051014, end: 20060720
  2. PROTECADIN [Concomitant]
     Dosage: UNK UNK, UNK
     Route: 048
  3. METHYCOBAL [Concomitant]
     Dosage: UNK UNK, UNK
     Route: 048
  4. AMARYL [Concomitant]
     Dosage: UNK UNK, UNK
     Route: 048
  5. ASPIRIN [Concomitant]
     Dosage: UNK UNK, UNK
     Route: 048
  6. ENBREL [Suspect]
     Indication: RHEUMATOID ARTHRITIS
     Dosage: 25 MG, 2 TIMES/WK
     Route: 058
     Dates: start: 20050613, end: 20050908
  7. ZOPICLONE [Concomitant]
     Dosage: UNK UNK, UNK
     Route: 048
  8. BUCILLAMINE [Concomitant]
     Dosage: 200 MG, QD
     Route: 048
  9. MUCOSOLVAN [Concomitant]
     Dosage: UNK UNK, UNK
     Route: 048
  10. BETAMETHASONE [Concomitant]
     Dosage: UNK UNK, UNK
     Route: 048

REACTIONS (4)
  - CONDITION AGGRAVATED [None]
  - RHEUMATOID ARTHRITIS [None]
  - PNEUMONIA STAPHYLOCOCCAL [None]
  - CANDIDA PNEUMONIA [None]
